FAERS Safety Report 6194951-8 (Version None)
Quarter: 2009Q2

REPORT INFORMATION
  Report Type: 
  Country: None (occurrence: None)
  Receive Date: 20090519
  Receipt Date: 20090514
  Transmission Date: 20091009
  Serious: Yes (Life-Threatening)
  Sender: FDA-Public Use
  Company Number: US-ABBOTT-09P-163-0573917-00

PATIENT

DRUGS (2)
  1. VALPROATE SODIUM [Suspect]
     Indication: AFFECTIVE DISORDER
     Dosage: NOT REPORTED
  2. QUETIAPINE FUMARATE [Interacting]
     Indication: AFFECTIVE DISORDER
     Dosage: NOT REPORTED

REACTIONS (3)
  - DRUG INTERACTION [None]
  - NEUTROPENIA [None]
  - WHITE BLOOD CELL COUNT DECREASED [None]
